FAERS Safety Report 9026769 (Version 1)
Quarter: 2013Q1

REPORT INFORMATION
  Report Type: Spontaneous
  Country: US (occurrence: US)
  Receive Date: 20130123
  Receipt Date: 20130123
  Transmission Date: 20140127
  Serious: Yes (Hospitalization)
  Sender: FDA-Public Use
  Company Number: US-BAYER-2013-008136

PATIENT
  Age: 32 Year
  Sex: Female
  Weight: 79.37 kg

DRUGS (7)
  1. YASMIN [Suspect]
  2. HYDROCODONE W/IBUPROFEN [Concomitant]
     Dosage: 7.5 MG/200 MG
     Route: 048
  3. VALTREX [Concomitant]
     Dosage: 500 MG, UNK
     Route: 048
  4. ROCEPHIN [Concomitant]
  5. PERCOCET 5/325 [Concomitant]
  6. LEVAQUIN [Concomitant]
  7. ALBUTEROL [Concomitant]

REACTIONS (1)
  - Pulmonary embolism [None]
